FAERS Safety Report 21547312 (Version 1)
Quarter: 2022Q4

REPORT INFORMATION
  Report Type: Report from Study
  Country: IT (occurrence: IT)
  Receive Date: 20221103
  Receipt Date: 20221103
  Transmission Date: 20230113
  Serious: Yes (Death)
  Sender: FDA-Public Use
  Company Number: IT-SUN PHARMACEUTICAL INDUSTRIES LTD-2022RR-362074

PATIENT
  Age: 6 Decade

DRUGS (12)
  1. IRINOTECAN [Suspect]
     Active Substance: IRINOTECAN
     Indication: Rectal adenocarcinoma
     Dosage: 180 MG/MQ OVER 90 MIN DAY 1
     Route: 065
  2. OXALIPLATIN [Suspect]
     Active Substance: OXALIPLATIN
     Indication: Rectal adenocarcinoma
     Dosage: 85 MG/MQ OVER 2 H DAY 1
     Route: 065
  3. OXALIPLATIN [Suspect]
     Active Substance: OXALIPLATIN
     Dosage: UNK
     Route: 065
  4. LEUCOVORIN CALCIUM [Suspect]
     Active Substance: LEUCOVORIN CALCIUM
     Indication: Rectal adenocarcinoma
     Dosage: 200 MG/MQ OVER 2 H DAY 1
     Route: 065
  5. LEUCOVORIN CALCIUM [Suspect]
     Active Substance: LEUCOVORIN CALCIUM
     Dosage: 200 MG/MQ OVER 2 H DAY 1-2
     Route: 065
  6. CAPECITABINE [Suspect]
     Active Substance: CAPECITABINE
     Indication: Rectal adenocarcinoma
     Dosage: 825 MG/MQ BID DAILY
     Route: 065
  7. FLUOROURACIL [Suspect]
     Active Substance: FLUOROURACIL
     Indication: Rectal adenocarcinoma
     Dosage: OVER 2400 MG/MQ OVER 48 H
     Route: 065
  8. FLUOROURACIL [Suspect]
     Active Substance: FLUOROURACIL
     Dosage: 400 MG/MQ 3^-4^ DAY 1
     Route: 065
  9. FLUOROURACIL [Suspect]
     Active Substance: FLUOROURACIL
     Dosage: 2,400 MG/MQ 48 H DAY 1 EVERY 2 WEEKS
     Route: 065
  10. BEVACIZUMAB [Suspect]
     Active Substance: BEVACIZUMAB
     Indication: Rectal adenocarcinoma
     Dosage: 5 MG/KG OVER 90^ THE FIRST TIME, THEN 5 MG/KG OVER 1 H NEXT
     Route: 065
  11. PANITUMUMAB [Suspect]
     Active Substance: PANITUMUMAB
     Indication: Rectal adenocarcinoma
     Dosage: 6 MILLIGRAM/KILOGRAM, EVERY 2 WEEKS
     Route: 065
  12. TIPIRACIL HYDROCHLORIDE\TRIFLURIDINE [Suspect]
     Active Substance: TIPIRACIL HYDROCHLORIDE\TRIFLURIDINE
     Indication: Rectal adenocarcinoma
     Dosage: 700 MG/MQ Q 28
     Route: 065

REACTIONS (1)
  - Disease progression [Fatal]
